FAERS Safety Report 5143255-0 (Version None)
Quarter: 2006Q4

REPORT INFORMATION
  Report Type: 
  Country: None (occurrence: None)
  Receive Date: 20061030
  Receipt Date: 20061025
  Transmission Date: 20070319
  Serious: Yes (Death, Life-Threatening, Hospitalization)
  Sender: FDA-Public Use
  Company Number: 2006SP002722

PATIENT
  Age: 61 Year
  Sex: Male
  Weight: 53.4 kg

DRUGS (8)
  1. TEMOZOLOMIDE (S-P) (TEMOZOLOMIDE) [Suspect]
     Indication: GLIOBLASTOMA MULTIFORME
     Dosage: SEE IMAGE
     Route: 048
     Dates: start: 20060508, end: 20060616
  2. TEMOZOLOMIDE (S-P) (TEMOZOLOMIDE) [Suspect]
     Indication: GLIOBLASTOMA MULTIFORME
     Dosage: SEE IMAGE
     Route: 048
     Dates: start: 20060618, end: 20060618
  3. TEMOZOLOMIDE (S-P) (TEMOZOLOMIDE) [Suspect]
     Indication: GLIOBLASTOMA MULTIFORME
     Dosage: SEE IMAGE
     Route: 048
     Dates: start: 20060712, end: 20060716
  4. TEMOZOLOMIDE (S-P) (TEMOZOLOMIDE) [Suspect]
     Indication: GLIOBLASTOMA MULTIFORME
     Dosage: SEE IMAGE
     Route: 048
     Dates: start: 20060809, end: 20060813
  5. TEMOZOLOMIDE (S-P) (TEMOZOLOMIDE) [Suspect]
     Indication: GLIOBLASTOMA MULTIFORME
     Dosage: SEE IMAGE
     Route: 048
     Dates: start: 20060906, end: 20060910
  6. RADIATION THERAPY [Concomitant]
  7. NASEA OD [Concomitant]
  8. KETOPROFEN [Concomitant]

REACTIONS (13)
  - CARDIO-RESPIRATORY ARREST [None]
  - LUNG NEOPLASM [None]
  - MEDICATION ERROR [None]
  - METASTASES TO LIVER [None]
  - METASTASES TO LUNG [None]
  - METASTASES TO LYMPH NODES [None]
  - METASTASES TO PLEURA [None]
  - METASTASES TO SOFT TISSUE [None]
  - METASTASES TO SPINE [None]
  - METASTASIS [None]
  - PLEURAL EFFUSION [None]
  - SPINAL OSTEOARTHRITIS [None]
  - TREATMENT NONCOMPLIANCE [None]
